FAERS Safety Report 4662736-7 (Version None)
Quarter: 2005Q2

REPORT INFORMATION
  Report Type: 
  Country: None (occurrence: None)
  Receive Date: 20050516
  Receipt Date: 20050504
  Transmission Date: 20051028
  Serious: Yes (Hospitalization)
  Sender: FDA-Public Use
  Company Number: CH-GLAXOSMITHKLINE-B0380569A

PATIENT
  Age: 75 Year
  Sex: Female

DRUGS (5)
  1. DEROXAT [Suspect]
     Dosage: 20MG PER DAY
     Route: 048
     Dates: start: 20050411, end: 20050417
  2. TRAMADOL HCL [Suspect]
     Indication: PAIN
     Dosage: 50MG FOUR TIMES PER DAY
     Route: 048
     Dates: start: 20050415, end: 20050417
  3. HALDOL [Suspect]
     Indication: RESTLESSNESS
     Dosage: 2.5MG PER DAY
     Route: 030
     Dates: start: 20050418, end: 20050418
  4. FRAXIPARINE [Concomitant]
     Dosage: .4ML PER DAY
     Route: 058
     Dates: start: 20050410, end: 20050416
  5. CLAMOXYL [Concomitant]
     Dosage: 750MG THREE TIMES PER DAY
     Route: 048
     Dates: start: 20050413, end: 20050417

REACTIONS (8)
  - AGITATION [None]
  - BLOOD PRESSURE INCREASED [None]
  - GLASGOW COMA SCALE ABNORMAL [None]
  - HEPATIC ENZYME INCREASED [None]
  - NEUROLEPTIC MALIGNANT SYNDROME [None]
  - OXYGEN SATURATION DECREASED [None]
  - PYREXIA [None]
  - SEROTONIN SYNDROME [None]
